FAERS Safety Report 5748457-8 (Version None)
Quarter: 2008Q2

REPORT INFORMATION
  Report Type: 
  Country: None (occurrence: None)
  Receive Date: 20080523
  Receipt Date: 20080512
  Transmission Date: 20081010
  Serious: Yes (Other)
  Sender: FDA-Public Use
  Company Number: US-PFIZER INC-2008040708

PATIENT
  Sex: Female
  Weight: 59.09 kg

DRUGS (2)
  1. REVATIO [Suspect]
     Indication: PULMONARY HYPERTENSION
  2. REMODULIN [Interacting]
     Indication: PULMONARY HYPERTENSION
     Dosage: TEXT:99.8NG/KG/MIN

REACTIONS (2)
  - DRUG INTERACTION [None]
  - HAEMORRHAGE [None]
